FAERS Safety Report 16405823 (Version 1)
Quarter: 2019Q2

REPORT INFORMATION
  Report Type: Spontaneous
  Country: US (occurrence: US)
  Receive Date: 20190607
  Receipt Date: 20190607
  Transmission Date: 20190711
  Serious: No
  Sender: FDA-Public Use
  Company Number: US-LANNETT COMPANY, INC.-US-2019LAN000342

PATIENT

DRUGS (3)
  1. DRONABINOL. [Suspect]
     Active Substance: DRONABINOL
     Indication: DECREASED APPETITE
     Dosage: RHODES DRONABINOL
     Route: 048
  2. DRONABINOL. [Suspect]
     Active Substance: DRONABINOL
     Dosage: 10 MG, QD
     Route: 048
     Dates: start: 20190305
  3. DRONABINOL. [Suspect]
     Active Substance: DRONABINOL
     Dosage: 10 MG, BID
     Route: 048
     Dates: start: 2019, end: 20190304

REACTIONS (4)
  - Malaise [Recovering/Resolving]
  - Drug ineffective [Unknown]
  - Urticaria [Recovered/Resolved]
  - Weight decreased [Not Recovered/Not Resolved]

NARRATIVE: CASE EVENT DATE: 2019
